FAERS Safety Report 23940557 (Version 1)
Quarter: 2024Q2

REPORT INFORMATION
  Report Type: Spontaneous
  Country: US (occurrence: US)
  Receive Date: 20240605
  Receipt Date: 20240605
  Transmission Date: 20240716
  Serious: No
  Sender: FDA-Public Use
  Company Number: US-BRISTOL-MYERS SQUIBB COMPANY-2024-090562

PATIENT
  Age: 87 Year
  Sex: Female
  Weight: 53.07 kg

DRUGS (1)
  1. REVLIMID [Suspect]
     Active Substance: LENALIDOMIDE
     Indication: Plasma cell myeloma
     Route: 048
     Dates: start: 20240301

REACTIONS (2)
  - Fatigue [Recovering/Resolving]
  - Taste disorder [Recovering/Resolving]
